FAERS Safety Report 4284474-5 (Version None)
Quarter: 2004Q1

REPORT INFORMATION
  Report Type: 
  Country: None (occurrence: None)
  Receive Date: 20040130
  Receipt Date: 20040120
  Transmission Date: 20041129
  Serious: Yes (Death, Hospitalization)
  Sender: FDA-Public Use
  Company Number: JP-JNJFOC-20031204393

PATIENT
  Age: 53 Year
  Sex: Female
  Weight: 36.8 kg

DRUGS (11)
  1. REMICADE [Suspect]
     Indication: RHEUMATOID ARTHRITIS
     Dosage: 3 MG/KG, 1 IN 1 AS NECESSARY, INTRAVENOUS DRIP
     Route: 041
     Dates: start: 20031202, end: 20031202
  2. REMICADE [Suspect]
     Indication: RHEUMATOID ARTHRITIS
     Dosage: 3 MG/KG, 1 IN 1 AS NECESSARY, INTRAVENOUS DRIP
     Route: 041
     Dates: start: 20031217, end: 20031217
  3. PREDNISOLONE [Suspect]
     Indication: RHEUMATOID ARTHRITIS
     Dosage: SEE IMAGE
     Route: 048
     Dates: start: 20030120, end: 20030407
  4. PREDNISOLONE [Suspect]
     Indication: RHEUMATOID ARTHRITIS
     Dosage: SEE IMAGE
     Route: 048
     Dates: start: 20030408, end: 20031215
  5. PREDNISOLONE [Suspect]
     Indication: RHEUMATOID ARTHRITIS
     Dosage: SEE IMAGE
     Route: 048
     Dates: start: 20031216, end: 20031218
  6. CLINORIL [Suspect]
     Indication: RHEUMATOID ARTHRITIS
     Dosage: 200 MG, IN 1 DAY, ORAL
     Route: 048
     Dates: start: 20030610, end: 20031218
  7. RHEUMATREX [Concomitant]
  8. FOLIAMIN (FOLIC ACID) [Concomitant]
  9. LANSOPRAZOLE [Concomitant]
  10. SELBEX (TEPRENONE) [Concomitant]
  11. ISONIAZID [Concomitant]

REACTIONS (12)
  - ANAL ULCER [None]
  - BLOOD CHOLESTEROL INCREASED [None]
  - CRYING [None]
  - DISSEMINATED INTRAVASCULAR COAGULATION [None]
  - DRUG INTERACTION [None]
  - FLUSHING [None]
  - LARGE INTESTINE PERFORATION [None]
  - LOSS OF CONSCIOUSNESS [None]
  - LYMPHOCYTE COUNT DECREASED [None]
  - PLATELET COUNT DECREASED [None]
  - SEPSIS [None]
  - SHOCK [None]
